FAERS Safety Report 11925116 (Version 3)
Quarter: 2016Q3

REPORT INFORMATION
  Report Type: Report from Study
  Country: PA (occurrence: PA)
  Receive Date: 20160118
  Receipt Date: 20160831
  Transmission Date: 20161109
  Serious: Yes (Other)
  Sender: FDA-Public Use
  Company Number: PHHY2016PA005111

PATIENT
  Age: 96 Year
  Sex: Female

DRUGS (1)
  1. EXELON PATCH [Suspect]
     Active Substance: RIVASTIGMINE
     Indication: AMNESIA
     Dosage: PATCH 5 CM2, QD
     Route: 062
     Dates: start: 201509, end: 201602

REACTIONS (4)
  - Application site erythema [Unknown]
  - Application site hypersensitivity [Unknown]
  - Musculoskeletal pain [Unknown]
  - Fall [Unknown]
